FAERS Safety Report 9269972 (Version 1)
Quarter: 2013Q2

REPORT INFORMATION
  Report Type: Spontaneous
  Country: US (occurrence: US)
  Receive Date: 20130503
  Receipt Date: 20130503
  Transmission Date: 20140414
  Serious: Yes (Other)
  Sender: FDA-Public Use
  Company Number: US-PFIZER INC-2013135853

PATIENT
  Age: 52 Year
  Sex: Female
  Weight: 70.3 kg

DRUGS (9)
  1. XANAX [Suspect]
     Indication: PANIC ATTACK
     Dosage: 2 MG, 2X/DAY
  2. XANAX [Suspect]
     Indication: ANXIETY
     Dosage: UNK, 2X/DAY
  3. XANAX [Suspect]
     Indication: POST-TRAUMATIC STRESS DISORDER
  4. SALBUTAMOL SULFATE [Suspect]
     Indication: ASTHMA
     Dosage: UNKNOWN DOSE TWO PUFFS, AS NEEDED
  5. SALBUTAMOL SULFATE [Suspect]
     Dosage: ONE AND HALF PUFFS
  6. ZOLOFT [Suspect]
     Indication: DEPRESSION
     Dosage: 300 MG, 1X/DAY
  7. ZOLOFT [Suspect]
     Indication: PANIC ATTACK
  8. KLONOPIN [Concomitant]
     Indication: ANXIETY
     Dosage: 2 MG, EVERY 6 HOURS
  9. SYNTHROID [Concomitant]
     Indication: HYPOTHYROIDISM
     Dosage: 1.5 UG, 1X/DAY

REACTIONS (4)
  - Pain [Unknown]
  - Asthma [Unknown]
  - Intentional drug misuse [Unknown]
  - Drug ineffective [Unknown]
